FAERS Safety Report 22221855 (Version 1)
Quarter: 2023Q2

REPORT INFORMATION
  Report Type: Spontaneous
  Country: CA (occurrence: CA)
  Receive Date: 20230418
  Receipt Date: 20230418
  Transmission Date: 20230722
  Serious: Yes (Other)
  Sender: FDA-Public Use
  Company Number: CA-BAXTER-2023BAX018336

PATIENT
  Sex: Female

DRUGS (1)
  1. BUPIVACAINE [Suspect]
     Active Substance: BUPIVACAINE
     Indication: Spinal anaesthesia
     Dosage: (BUPIVACAINE HYDROCHLORIDE IN DEXTROSE INJECTION USP SINGLE DOSE) (DOSAGE FORM: SOLUTION INTRASPINAL
     Route: 065

REACTIONS (2)
  - Inadequate analgesia [Unknown]
  - Foetal exposure during delivery [Unknown]
